FAERS Safety Report 9371985 (Version 1)
Quarter: 2013Q2

REPORT INFORMATION
  Report Type: Report from Study
  Country: US (occurrence: US)
  Receive Date: 20130627
  Receipt Date: 20130627
  Transmission Date: 20140414
  Serious: Yes (Other)
  Sender: FDA-Public Use
  Company Number: US-MYLANLABS-2012S1011689

PATIENT
  Age: 46 Year
  Sex: Male
  Weight: 97.52 kg

DRUGS (9)
  1. CLOZAPINE TABLETS [Suspect]
     Indication: SCHIZOPHRENIA
     Route: 048
     Dates: start: 20120523, end: 20120530
  2. CLOZAPINE TABLETS [Suspect]
     Indication: SCHIZOPHRENIA
     Route: 048
     Dates: start: 2012
  3. LITHIUM CARBONATE [Concomitant]
  4. CELEXA [Concomitant]
  5. KLONOPIN [Concomitant]
  6. DEPAKOTE ER [Concomitant]
  7. AMLODIPINE [Concomitant]
  8. COGENTIN [Concomitant]
  9. SIMVASTATIN [Concomitant]

REACTIONS (1)
  - Granulocytopenia [Not Recovered/Not Resolved]
